FAERS Safety Report 6547636-X (Version None)
Quarter: 2010Q1

REPORT INFORMATION
  Report Type: 
  Country: None (occurrence: None)
  Receive Date: 20100122
  Receipt Date: 20100119
  Transmission Date: 20100710
  Serious: Yes (Hospitalization)
  Sender: FDA-Public Use
  Company Number: US-GILEAD-2010-0026559

PATIENT
  Sex: Female
  Weight: 93.07 kg

DRUGS (15)
  1. LETAIRIS [Suspect]
     Indication: PULMONARY ARTERIAL HYPERTENSION
     Route: 048
     Dates: start: 20090109
  2. ZAROXOLYN [Concomitant]
  3. ASPIRIN [Concomitant]
  4. ALDACTONE [Concomitant]
  5. DEMADEX [Concomitant]
  6. PROAIR HFA [Concomitant]
  7. FLEXERIL [Concomitant]
  8. PAXIL [Concomitant]
  9. NEURONTIN [Concomitant]
  10. K-DUR [Concomitant]
  11. CEPHALEXIN [Concomitant]
  12. HYDROCODONE BITARTRATE AND ACETAMINOPHEN [Concomitant]
  13. LANTUS [Concomitant]
  14. HUMALOG [Concomitant]
  15. FOLIC ACID [Concomitant]

REACTIONS (3)
  - DEHYDRATION [None]
  - GASTRIC INFECTION [None]
  - INFLUENZA [None]
